FAERS Safety Report 6405325-6 (Version None)
Quarter: 2009Q4

REPORT INFORMATION
  Report Type: 
  Country: None (occurrence: None)
  Receive Date: 20091019
  Receipt Date: 19970501
  Transmission Date: 20100525
  Serious: Yes (Other)
  Sender: FDA-Public Use
  Company Number: PHHY1997GB00441

PATIENT
  Sex: Female

DRUGS (1)
  1. CLOZARIL [Suspect]
     Indication: SCHIZOPHRENIA
     Dosage: UNK
     Dates: start: 19970320, end: 19970428

REACTIONS (2)
  - INTESTINAL PERFORATION [None]
  - OVARIAN GERM CELL TERATOMA BENIGN [None]
